FAERS Safety Report 6603774-4 (Version None)
Quarter: 2010Q1

REPORT INFORMATION
  Report Type: 
  Country: None (occurrence: None)
  Receive Date: 20100226
  Receipt Date: 20090504
  Transmission Date: 20100710
  Serious: No
  Sender: FDA-Public Use
  Company Number: A0765087A

PATIENT
  Sex: Male

DRUGS (2)
  1. LAMICTAL CD [Suspect]
     Indication: DRUG USE FOR UNKNOWN INDICATION
     Dosage: 25MG IN THE MORNING
     Route: 048
  2. ELECTROCONVULSIVE THERAPY [Suspect]
     Indication: CONVULSION

REACTIONS (2)
  - AGITATION [None]
  - ILL-DEFINED DISORDER [None]
